FAERS Safety Report 8115955-1 (Version None)
Quarter: 2012Q1

REPORT INFORMATION
  Report Type: 
  Country: None (occurrence: None)
  Receive Date: 20120206
  Receipt Date: 20120202
  Transmission Date: 20120608
  Serious: Yes (Life-Threatening, Hospitalization)
  Sender: FDA-Public Use
  Company Number: PL-BAYER-2012-011021

PATIENT
  Age: 47 Year
  Sex: Female

DRUGS (11)
  1. RAMIPRIL [Concomitant]
  2. CLOPIDOGREL [Suspect]
     Dosage: 75 MG, UNK
  3. PANTOPRAZOLE [Concomitant]
  4. METOPROLOL TARTRATE [Concomitant]
  5. OTHER ANTIHYPERTENSIVES [Concomitant]
  6. ASPIRIN [Suspect]
     Dosage: 75 MG, UNK
  7. SIMVASTATIN [Concomitant]
  8. AMLODIPINE [Concomitant]
  9. IRON [Concomitant]
     Route: 048
  10. ASPIRIN [Suspect]
     Dosage: 150 MG, UNK
  11. ATORVASTATIN [Concomitant]

REACTIONS (2)
  - THROMBOSIS IN DEVICE [None]
  - ACUTE MYOCARDIAL INFARCTION [None]
